FAERS Safety Report 19227329 (Version 1)
Quarter: 2021Q2

REPORT INFORMATION
  Report Type: Spontaneous
  Country: AT (occurrence: AT)
  Receive Date: 20210507
  Receipt Date: 20210507
  Transmission Date: 20210717
  Serious: Yes (Other)
  Sender: FDA-Public Use
  Company Number: AT-AMGEN-AUTSP2021069357

PATIENT
  Age: 71 Year
  Sex: Female

DRUGS (2)
  1. RITUXIMAB. [Concomitant]
     Active Substance: RITUXIMAB
     Indication: NEUROMYELITIS OPTICA SPECTRUM DISORDER
     Dosage: UNK
  2. ENBREL [Suspect]
     Active Substance: ETANERCEPT
     Indication: PRODUCT USED FOR UNKNOWN INDICATION
     Dosage: 1 DF, WEEKLY, SINCE 10?15 YEARS
     Route: 065

REACTIONS (8)
  - Hypoaesthesia [Unknown]
  - Myocardial infarction [Unknown]
  - Pruritus [Unknown]
  - Optic neuritis [Unknown]
  - Renal failure [Unknown]
  - Peripheral coldness [Unknown]
  - Dyspepsia [Unknown]
  - Burning sensation [Unknown]

NARRATIVE: CASE EVENT DATE: 2021
